FAERS Safety Report 14165651 (Version 1)
Quarter: 2017Q4

REPORT INFORMATION
  Report Type: Spontaneous
  Country: MX (occurrence: MX)
  Receive Date: 20171107
  Receipt Date: 20171107
  Transmission Date: 20180321
  Serious: Yes (Hospitalization)
  Sender: FDA-Public Use
  Company Number: MX-PFIZER INC-2017473461

PATIENT
  Age: 67 Year
  Sex: Female

DRUGS (2)
  1. DETRUSITOL [Suspect]
     Active Substance: TOLTERODINE TARTRATE
     Dosage: 2 MG, UNK
  2. FACTIVE [Concomitant]
     Active Substance: GEMIFLOXACIN MESYLATE

REACTIONS (1)
  - Malaise [Not Recovered/Not Resolved]
